FAERS Safety Report 16974407 (Version 1)
Quarter: 2019Q4

REPORT INFORMATION
  Report Type: Report from Study
  Country: None (occurrence: MX)
  Receive Date: 20191030
  Receipt Date: 20191030
  Transmission Date: 20200122
  Serious: Yes (Other)
  Sender: FDA-Public Use
  Company Number: MX-ABBVIE-19P-107-2982394-00

PATIENT
  Age: 62 Year
  Sex: Female

DRUGS (3)
  1. SAMYR [Suspect]
     Active Substance: ADEMETIONINE
     Indication: METASTASES TO LIVER
     Route: 048
     Dates: start: 20191012
  2. CREON [Suspect]
     Active Substance: PANCRELIPASE AMYLASE\PANCRELIPASE LIPASE\PANCRELIPASE PROTEASE
     Indication: PANCREATIC CARCINOMA
     Route: 048
     Dates: start: 201908, end: 20191019
  3. CREON [Suspect]
     Active Substance: PANCRELIPASE AMYLASE\PANCRELIPASE LIPASE\PANCRELIPASE PROTEASE
     Dosage: DOSE INCREASED
     Route: 048
     Dates: start: 20191019

REACTIONS (2)
  - Metastases to liver [Not Recovered/Not Resolved]
  - Product use in unapproved indication [Unknown]

NARRATIVE: CASE EVENT DATE: 20191012
